FAERS Safety Report 20540183 (Version 3)
Quarter: 2022Q2

REPORT INFORMATION
  Report Type: Spontaneous
  Country: CA (occurrence: CA)
  Receive Date: 20220302
  Receipt Date: 20220413
  Transmission Date: 20220720
  Serious: Yes (Other)
  Sender: FDA-Public Use
  Company Number: CA-PFIZER INC-202200319540

PATIENT
  Age: 81 Year
  Sex: Female

DRUGS (2)
  1. RUXIENCE [Suspect]
     Active Substance: RITUXIMAB-PVVR
     Indication: Cryoglobulinaemia
     Dosage: 1 G ON DAY 1 AND DAY 15
     Route: 042
     Dates: start: 20210416
  2. RUXIENCE [Suspect]
     Active Substance: RITUXIMAB-PVVR
     Dosage: 1 G ON DAY 1 AND DAY 15
     Route: 042
     Dates: start: 20210430

REACTIONS (5)
  - Neuropathy peripheral [Not Recovered/Not Resolved]
  - Acquired diaphragmatic eventration [Unknown]
  - Off label use [Unknown]
  - Infected cyst [Not Recovered/Not Resolved]
  - Vasculitis [Unknown]

NARRATIVE: CASE EVENT DATE: 20210416
